FAERS Safety Report 14343590 (Version 12)
Quarter: 2018Q3

REPORT INFORMATION
  Report Type: Spontaneous
  Country: GB (occurrence: GB)
  Receive Date: 20180102
  Receipt Date: 20180926
  Transmission Date: 20181010
  Serious: Yes (Other)
  Sender: FDA-Public Use
  Company Number: GB-PFIZER INC-2017552573

PATIENT
  Age: 73 Year
  Sex: Female
  Weight: 48 kg

DRUGS (9)
  1. DEXAMETHASONE SODIUM PHOSPHATE. [Suspect]
     Active Substance: DEXAMETHASONE SODIUM PHOSPHATE
     Dosage: 20 MG, 1X/DAY
     Dates: start: 20171102, end: 20171106
  2. BACTERIOSTATIC SODIUM CHLORIDE [Suspect]
     Active Substance: SODIUM CHLORIDE
     Dosage: UNK (SOLUTION)
     Route: 041
     Dates: start: 20171110, end: 20171114
  3. ALLOPURINOL. [Suspect]
     Active Substance: ALLOPURINOL
     Dosage: 300 MG, 1X/DAY
     Dates: start: 20171104, end: 20171120
  4. BACTERIOSTATIC SODIUM CHLORIDE [Suspect]
     Active Substance: SODIUM CHLORIDE
     Indication: MEDICATION DILUTION
     Dosage: UNK (SOLUTION)
     Route: 041
     Dates: start: 20171107, end: 201711
  5. MELPHALAN. [Suspect]
     Active Substance: MELPHALAN
     Dosage: 14 MG, 1X/DAY
     Dates: start: 20171107, end: 20171110
  6. FENTANYL. [Suspect]
     Active Substance: FENTANYL
     Dosage: 12 UG, 1 HOUR
     Route: 062
     Dates: start: 20171108
  7. VELCADE [Suspect]
     Active Substance: BORTEZOMIB
     Indication: PLASMA CELL LEUKAEMIA
     Dosage: 1.8 MG, UNK
     Route: 058
     Dates: start: 20171107, end: 201711
  8. ALLOPURINOL. [Suspect]
     Active Substance: ALLOPURINOL
     Dosage: 300 MG, 1X/DAY
     Dates: start: 20171120
  9. VELCADE [Suspect]
     Active Substance: BORTEZOMIB
     Dosage: 1.8 MG, UNK
     Route: 058
     Dates: start: 20171110, end: 20171114

REACTIONS (9)
  - Paranoia [Recovered/Resolved]
  - Disturbance in social behaviour [Recovered/Resolved]
  - Hallucination [Recovered/Resolved]
  - Off label use [Unknown]
  - Disorientation [Recovered/Resolved]
  - Abnormal behaviour [Recovered/Resolved]
  - Agitation [Recovered/Resolved]
  - Confusional state [Recovered/Resolved]
  - Product use in unapproved indication [Unknown]

NARRATIVE: CASE EVENT DATE: 20171107
